FAERS Safety Report 8301712-X (Version None)
Quarter: 2012Q1

REPORT INFORMATION
  Report Type: 
  Country: None (occurrence: None)
  Receive Date: 20120326
  Receipt Date: 20111103
  Transmission Date: 20120608
  Serious: Yes (Hospitalization)
  Sender: FDA-Public Use
  Company Number: PHEH2009US00440

PATIENT
  Age: 64 Year
  Sex: Female

DRUGS (15)
  1. LEXAPRO [Concomitant]
  2. FIBER (POLYCARBOPHIL CALCIUM) [Concomitant]
  3. MULTIVITAMIN [Concomitant]
  4. CALCIUM CARBONATE [Concomitant]
  5. ASPIRIN [Concomitant]
  6. AMOXIIL (AMOXICILLIN TRIHYDRATE) [Concomitant]
  7. NITROGLYCERIN [Concomitant]
  8. MAALOX (ALGELDRATE, MAGNESIUM HYDROXIDE) [Concomitant]
  9. REGLAN [Concomitant]
  10. ZOFRAN [Concomitant]
  11. TASIGNA [Suspect]
     Indication: CHRONIC MYELOID LEUKAEMIA
     Dosage: 200 MG, BID, ORAL
     Route: 048
     Dates: start: 20081101
  12. NEURONTIN [Concomitant]
  13. MELOXICAM [Concomitant]
  14. AMITRIPTYLINE HCL [Concomitant]
  15. SCOPOLAMINE [Concomitant]

REACTIONS (7)
  - GASTROINTESTINAL DISORDER [None]
  - CONSTIPATION [None]
  - NAUSEA [None]
  - CHEST DISCOMFORT [None]
  - HYPOAESTHESIA [None]
  - DYSPEPSIA [None]
  - DIARRHOEA [None]
